FAERS Safety Report 12101638 (Version 2)
Quarter: 2016Q1

REPORT INFORMATION
  Report Type: Spontaneous
  Country: US (occurrence: US)
  Receive Date: 20160222
  Receipt Date: 20160222
  Transmission Date: 20160526
  Serious: Yes (Death, Other)
  Sender: FDA-Public Use
  Company Number: US-SA-2016SA032790

PATIENT
  Age: 86 Year
  Sex: Female

DRUGS (1)
  1. LANTUS SOLOSTAR [Suspect]
     Active Substance: INSULIN GLARGINE
     Indication: TYPE 2 DIABETES MELLITUS
     Dosage: START DATE: 1.5 YEARS AGO?DOSE: 25-30 UNITS (VARIES DEPENDING UPON BLOOD SUGAR LEVEL)
     Route: 065
     Dates: start: 2014

REACTIONS (4)
  - Dementia [Unknown]
  - Blood glucose fluctuation [Unknown]
  - Death [Fatal]
  - Overdose [Unknown]
